FAERS Safety Report 4807439-0 (Version None)
Quarter: 2005Q4

REPORT INFORMATION
  Report Type: 
  Country: None (occurrence: None)
  Receive Date: 20051024
  Receipt Date: 20050919
  Transmission Date: 20060501
  Serious: Yes (Hospitalization)
  Sender: FDA-Public Use
  Company Number: US-MERCK-0509USA02633

PATIENT
  Age: 55 Year
  Sex: Female
  Weight: 91 kg

DRUGS (21)
  1. VIOXX [Suspect]
     Indication: ARTHRITIS
     Route: 048
     Dates: start: 19990817, end: 20010817
  2. ACIPHEX [Concomitant]
     Route: 065
  3. ALLOPURINOL MSD [Concomitant]
     Route: 065
  4. CEPHALEXIN [Concomitant]
     Route: 065
  5. CLONIDINE [Concomitant]
     Route: 065
  6. DEMADEX [Concomitant]
     Route: 065
  7. DILACOR XR [Concomitant]
     Route: 065
  8. GLUCOPHAGE [Concomitant]
     Route: 065
  9. IMDUR [Concomitant]
     Route: 065
  10. ISOSORBIDE MONONITRATE [Concomitant]
     Route: 065
  11. KLOR-CON [Concomitant]
     Route: 065
  12. KLOR-CON [Concomitant]
     Route: 065
  13. LANOXIN [Concomitant]
     Route: 065
  14. LOTREL [Concomitant]
     Route: 065
  15. NEURONTIN [Concomitant]
     Route: 065
  16. NITROSTAT [Concomitant]
     Route: 065
  17. PEPCID [Concomitant]
     Route: 065
  18. PLAVIX [Concomitant]
     Route: 065
  19. PROPULSID [Concomitant]
     Route: 065
  20. VASOTEC [Concomitant]
     Route: 065
  21. VITAMINS (UNSPECIFIED) [Concomitant]
     Route: 065

REACTIONS (7)
  - ARTHROPATHY [None]
  - CHEST PAIN [None]
  - CORONARY ARTERY DISEASE [None]
  - DYSLIPIDAEMIA [None]
  - GASTRIC DISORDER [None]
  - HEART RATE ABNORMAL [None]
  - MYOCARDIAL INFARCTION [None]
